FAERS Safety Report 4343548-0 (Version None)
Quarter: 2004Q2

REPORT INFORMATION
  Report Type: 
  Country: None (occurrence: None)
  Receive Date: 20040421
  Receipt Date: 20040421
  Transmission Date: 20050107
  Serious: Yes (Death)
  Sender: FDA-Public Use
  Company Number: None

PATIENT
  Age: 39 Year
  Sex: Male
  Weight: 45.3597 kg

DRUGS (1)
  1. DURAGESIC [Suspect]
     Indication: PAIN
     Dosage: 50 MCG/HR 1 Q 3 DAYS TOPICAL
     Route: 061
     Dates: start: 20030519, end: 20030520

REACTIONS (2)
  - DRUG TOXICITY [None]
  - OVERDOSE [None]
